FAERS Safety Report 6809498-2 (Version None)
Quarter: 2010Q2

REPORT INFORMATION
  Report Type: 
  Country: None (occurrence: None)
  Receive Date: 20100625
  Receipt Date: 20100625
  Transmission Date: 20101027
  Serious: Yes (Death, Hospitalization, Other)
  Sender: FDA-Public Use
  Company Number: 7000010

PATIENT
  Age: 52 Year
  Sex: Female
  Weight: 127 kg

DRUGS (3)
  1. REBIF [Suspect]
     Indication: MULTIPLE SCLEROSIS
     Dosage: 44 MCG
     Dates: start: 20080208
  2. PAIN MEDICATIONS (MENTHOL W/METHYL SALICYLATE) [Concomitant]
  3. ANTIBIOTICS (ANTIBIOTICS) [Concomitant]

REACTIONS (3)
  - HYDRONEPHROSIS [None]
  - OVARIAN CANCER [None]
  - RENAL FAILURE ACUTE [None]
